FAERS Safety Report 11661366 (Version 2)
Quarter: 2015Q4

REPORT INFORMATION
  Report Type: Spontaneous
  Country: DZ (occurrence: DZ)
  Receive Date: 20151026
  Receipt Date: 20151124
  Transmission Date: 20160304
  Serious: Yes (Disabling, Other)
  Sender: FDA-Public Use
  Company Number: DZ-PFIZER INC-2015351103

PATIENT
  Age: 57 Year
  Sex: Male

DRUGS (1)
  1. ZOXAN LP [Suspect]
     Active Substance: DOXAZOSIN MESYLATE
     Indication: BENIGN PROSTATIC HYPERPLASIA
     Dosage: 4 MG, UNK

REACTIONS (1)
  - Transient ischaemic attack [Recovered/Resolved]
